FAERS Safety Report 10492890 (Version 1)
Quarter: 2014Q4

REPORT INFORMATION
  Report Type: Spontaneous
  Country: US (occurrence: US)
  Receive Date: 20141002
  Receipt Date: 20141002
  Transmission Date: 20150528
  Serious: No
  Sender: FDA-Public Use
  Company Number: US-GLAXOSMITHKLINE-A1076598A

PATIENT
  Age: 75 Year
  Sex: Female

DRUGS (17)
  1. PRAVASTATIN [Concomitant]
     Active Substance: PRAVASTATIN\PRAVASTATIN SODIUM
  2. TRAZODONE [Concomitant]
     Active Substance: TRAZODONE HYDROCHLORIDE
  3. VITAMIN D [Concomitant]
     Active Substance: CHOLECALCIFEROL
  4. METOPROLOL [Concomitant]
     Active Substance: METOPROLOL
  5. OCUVITE [Concomitant]
     Active Substance: VITAMINS
  6. MAGNESIUM [Concomitant]
     Active Substance: MAGNESIUM
  7. VENTOLIN [Suspect]
     Active Substance: ALBUTEROL SULFATE
     Indication: ASTHMA
     Dosage: 2PUFF AS REQUIRED
     Route: 055
     Dates: start: 201401
  8. FUROSEMIDE. [Concomitant]
     Active Substance: FUROSEMIDE
  9. FLEXERIL [Concomitant]
     Active Substance: CYCLOBENZAPRINE HYDROCHLORIDE
  10. POTASSIUM GLUCONATE [Concomitant]
     Active Substance: POTASSIUM GLUCONATE
  11. PROBIOTIC [Concomitant]
     Active Substance: PROBIOTICS NOS
  12. ESTRADIOL. [Concomitant]
     Active Substance: ESTRADIOL
  13. BIOTIN [Concomitant]
     Active Substance: BIOTIN
  14. NIACIN. [Concomitant]
     Active Substance: NIACIN
  15. PLAVIX [Concomitant]
     Active Substance: CLOPIDOGREL BISULFATE
  16. ADVAIR HFA [Suspect]
     Active Substance: FLUTICASONE PROPIONATE\SALMETEROL XINAFOATE
     Indication: ASTHMA
     Dosage: 1PUFF TWICE PER DAY
     Route: 055
     Dates: start: 201401
  17. FOLIC ACID. [Concomitant]
     Active Substance: FOLIC ACID

REACTIONS (8)
  - Asthenia [Unknown]
  - Abdominal distension [Unknown]
  - Blood blister [Unknown]
  - Herpes zoster [Not Recovered/Not Resolved]
  - Dyspnoea [Unknown]
  - Blister [Unknown]
  - Agitation [Unknown]
  - Abdominal pain [Unknown]

NARRATIVE: CASE EVENT DATE: 201405
